FAERS Safety Report 18305800 (Version 1)
Quarter: 2020Q3

REPORT INFORMATION
  Report Type: Spontaneous
  Country: US (occurrence: US)
  Receive Date: 20200923
  Receipt Date: 20200923
  Transmission Date: 20201103
  Serious: Yes (Other)
  Sender: FDA-Public Use
  Company Number: None

PATIENT
  Age: 38 Year
  Sex: Female
  Weight: 63 kg

DRUGS (4)
  1. HUMIRA [Suspect]
     Active Substance: ADALIMUMAB
     Indication: CROHN^S DISEASE
     Dosage: ?          QUANTITY:1 INJECTION(S);OTHER FREQUENCY:2 WEEKS;?
     Route: 058
     Dates: start: 20200918, end: 20200918
  2. IMMURAN [Concomitant]
  3. MULTI VITAMIN [Concomitant]
     Active Substance: VITAMINS
  4. PROZAC [Concomitant]
     Active Substance: FLUOXETINE HYDROCHLORIDE

REACTIONS (4)
  - Swelling face [None]
  - Peripheral swelling [None]
  - Swelling [None]
  - Urticaria [None]

NARRATIVE: CASE EVENT DATE: 20200922
